FAERS Safety Report 25706187 (Version 1)
Quarter: 2025Q3

REPORT INFORMATION
  Report Type: Spontaneous
  Country: RU (occurrence: RU)
  Receive Date: 20250820
  Receipt Date: 20250820
  Transmission Date: 20251021
  Serious: Yes (Other)
  Sender: ALEXION PHARMACEUTICALS
  Company Number: RU-ASTRAZENECA-202506EAF010265RU

PATIENT
  Age: 48 Year
  Sex: Female
  Weight: 57 kg

DRUGS (1)
  1. DAPAGLIFLOZIN [Suspect]
     Active Substance: DAPAGLIFLOZIN
     Dosage: 10 MILLIGRAM, BID
     Route: 065

REACTIONS (6)
  - Off label use [Recovered/Resolved]
  - Cystitis [Recovered/Resolved]
  - Candida infection [Recovered/Resolved]
  - Menopause [Unknown]
  - Pyelonephritis [Unknown]
  - Tuberculosis of genitourinary system [Unknown]
